FAERS Safety Report 16366038 (Version 1)
Quarter: 2019Q2

REPORT INFORMATION
  Report Type: Spontaneous
  Country: US (occurrence: US)
  Receive Date: 20190422
  Receipt Date: 20190422
  Transmission Date: 20190711
  Serious: Yes (Other)
  Sender: FDA-Public Use
  Company Number: None

PATIENT
  Age: 76 Year
  Sex: Female
  Weight: 70.31 kg

DRUGS (8)
  1. YUVAFEM [Suspect]
     Active Substance: ESTRADIOL HEMIHYDRATE
     Indication: VULVOVAGINAL DRYNESS
     Dosage: ?          QUANTITY:18 VAGINAL INSEATS;?
     Route: 067
     Dates: start: 201812
  2. MIRTAHAPINE 15MG [Concomitant]
  3. AZO-CRANBERRY [Concomitant]
  4. PROGRAF 1.5 MG [Concomitant]
  5. YUVAFEM [Suspect]
     Active Substance: ESTRADIOL HEMIHYDRATE
     Indication: ATROPHIC VULVOVAGINITIS
     Dosage: ?          QUANTITY:18 VAGINAL INSEATS;?
     Route: 067
     Dates: start: 201812
  6. AMLODIPINE BESYLATE. [Concomitant]
     Active Substance: AMLODIPINE BESYLATE
  7. YUVAFEM [Suspect]
     Active Substance: ESTRADIOL HEMIHYDRATE
     Indication: URINARY TRACT INFECTION
     Dosage: ?          QUANTITY:18 VAGINAL INSEATS;?
     Route: 067
     Dates: start: 201812
  8. CENTRUM SILVER MULTIVITAMIN [Concomitant]

REACTIONS (18)
  - Anxiety [None]
  - Renal transplant [None]
  - Amnesia [None]
  - Insomnia [None]
  - Temperature intolerance [None]
  - Pyrexia [None]
  - Pollakiuria [None]
  - Incontinence [None]
  - Adverse event [None]
  - Memory impairment [None]
  - Conversion disorder [None]
  - Klebsiella infection [None]
  - Feeling abnormal [None]
  - Urinary tract infection [None]
  - Hypertension [None]
  - Alopecia [None]
  - Weight increased [None]
  - Nervousness [None]

NARRATIVE: CASE EVENT DATE: 201902
